FAERS Safety Report 20255706 (Version 5)
Quarter: 2022Q1

REPORT INFORMATION
  Report Type: Spontaneous
  Country: US (occurrence: US)
  Receive Date: 20211230
  Receipt Date: 20220315
  Transmission Date: 20220423
  Serious: No
  Sender: FDA-Public Use
  Company Number: US-GLAXOSMITHKLINE-US2001AMR000035

PATIENT
  Age: 65 Year
  Sex: Female

DRUGS (2)
  1. ZEJULA [Suspect]
     Active Substance: NIRAPARIB
     Indication: Ovarian cancer
     Dosage: 200 MG, QD
     Dates: start: 20211220
  2. ZEJULA [Suspect]
     Active Substance: NIRAPARIB
     Dosage: 100 MG, QD
     Dates: start: 20220111, end: 202202

REACTIONS (13)
  - Nausea [Not Recovered/Not Resolved]
  - Headache [Unknown]
  - Nasopharyngitis [Recovering/Resolving]
  - Cerebral congestion [Recovering/Resolving]
  - Oropharyngeal pain [Recovering/Resolving]
  - Red blood cell count decreased [Unknown]
  - White blood cell count decreased [Not Recovered/Not Resolved]
  - Liver function test abnormal [Recovering/Resolving]
  - Fatigue [Not Recovered/Not Resolved]
  - Renal function test abnormal [Recovering/Resolving]
  - Constipation [Not Recovered/Not Resolved]
  - Sinusitis [Not Recovered/Not Resolved]
  - Nasal congestion [Not Recovered/Not Resolved]

NARRATIVE: CASE EVENT DATE: 20211201
